FAERS Safety Report 4497659-X (Version None)
Quarter: 2004Q4

REPORT INFORMATION
  Report Type: 
  Country: None (occurrence: None)
  Receive Date: 20041108
  Receipt Date: 20041027
  Transmission Date: 20050328
  Serious: Yes (Other)
  Sender: FDA-Public Use
  Company Number: CA-JNJFOC-20041008010

PATIENT
  Age: 37 Year
  Sex: Male
  Weight: 99.79 kg

DRUGS (2)
  1. CONCERTA [Suspect]
     Route: 049
  2. IMOVANE [Concomitant]

REACTIONS (2)
  - GASTROINTESTINAL HAEMORRHAGE [None]
  - HAEMATOCHEZIA [None]
